FAERS Safety Report 4379055-9 (Version None)
Quarter: 2004Q2

REPORT INFORMATION
  Report Type: 
  Country: None (occurrence: None)
  Receive Date: 20040615
  Receipt Date: 20040615
  Transmission Date: 20050107
  Serious: Yes (Other)
  Sender: FDA-Public Use
  Company Number: None

PATIENT
  Age: 9 Year
  Sex: Male

DRUGS (2)
  1. DEFEROXAMINE 2 GM (ABBOTT) [Suspect]
     Indication: SICKLE CELL ANAEMIA
     Dosage: 1.5 GM DESFERAL +
     Dates: start: 20030805
  2. HYDROCORTISONE [Suspect]
     Indication: BLOOD IRON INCREASED
     Dosage: 10 MG HC SQ 6X/WK
     Route: 058
     Dates: start: 20040120

REACTIONS (4)
  - DIFFICULTY IN WALKING [None]
  - INFUSION SITE ERYTHEMA [None]
  - INFUSION SITE PAIN [None]
  - INFUSION SITE SWELLING [None]
